FAERS Safety Report 8106598-4 (Version None)
Quarter: 2012Q1

REPORT INFORMATION
  Report Type: 
  Country: None (occurrence: None)
  Receive Date: 20120202
  Receipt Date: 20120124
  Transmission Date: 20120608
  Serious: Yes (Hospitalization, Other)
  Sender: FDA-Public Use
  Company Number: US-BAYER-2011-049340

PATIENT
  Age: 35 Year
  Sex: Female
  Weight: 97.506 kg

DRUGS (5)
  1. OTC [Concomitant]
     Dosage: UNK
     Dates: start: 20000101, end: 20110101
  2. KEFLEX [Concomitant]
     Indication: LYMPHADENOPATHY
     Dosage: 250 MG, QID
     Dates: start: 20090611
  3. YAZ [Suspect]
     Indication: PREMENSTRUAL SYNDROME
     Dosage: UNK
     Dates: start: 20071211, end: 20090618
  4. TOPAMAX [Concomitant]
     Dosage: 200 MG, HS
     Route: 048
  5. KLONOPIN [Concomitant]
     Dosage: 0.5 MG, HS
     Route: 048

REACTIONS (8)
  - PAIN [None]
  - GENERAL PHYSICAL HEALTH DETERIORATION [None]
  - VASODILATATION [None]
  - EMOTIONAL DISTRESS [None]
  - VEIN DISORDER [None]
  - ANXIETY [None]
  - DEEP VEIN THROMBOSIS [None]
  - THROMBOPHLEBITIS SUPERFICIAL [None]
